FAERS Safety Report 17139059 (Version 1)
Quarter: 2019Q4

REPORT INFORMATION
  Report Type: Spontaneous
  Country: US (occurrence: US)
  Receive Date: 20191210
  Receipt Date: 20191210
  Transmission Date: 20200122
  Serious: Yes (Other)
  Sender: FDA-Public Use
  Company Number: None

PATIENT
  Age: 55 Year
  Sex: Female

DRUGS (9)
  1. DULOXETINE 120MG [Concomitant]
     Dates: start: 20190718
  2. GABAPENTIN 600MG [Concomitant]
     Active Substance: GABAPENTIN
     Dates: start: 20191008
  3. METRONIDAZOLE 1% [Concomitant]
     Dates: start: 20191115
  4. CHANTIX [Suspect]
     Active Substance: VARENICLINE TARTRATE
     Indication: EX-TOBACCO USER
     Route: 048
     Dates: start: 20191122, end: 20191209
  5. HAIR SKIN + NAILS [Concomitant]
     Dates: start: 20191120
  6. IBUPROFEN 800MG [Concomitant]
     Active Substance: IBUPROFEN
     Dates: start: 20191008
  7. TERBINAFINE 250MG [Concomitant]
     Active Substance: TERBINAFINE
     Dates: start: 20190717
  8. BACLOFEN 10MG [Concomitant]
     Active Substance: BACLOFEN
     Dates: start: 20191009
  9. BUSPIRONE 30MG [Concomitant]
     Dates: start: 20190718

REACTIONS (1)
  - Hallucination, auditory [None]
